FAERS Safety Report 11326035 (Version 2)
Quarter: 2015Q4

REPORT INFORMATION
  Report Type: Report from Study
  Country: DK (occurrence: DK)
  Receive Date: 20150731
  Receipt Date: 20151021
  Transmission Date: 20160304
  Serious: Yes (Death)
  Sender: FDA-Public Use
  Company Number: DK-ACCORD-032515

PATIENT
  Age: 38 Year
  Sex: Male
  Weight: 91 kg

DRUGS (7)
  1. CLOBAZAM [Concomitant]
     Active Substance: CLOBAZAM
  2. OXYCODONE [Suspect]
     Active Substance: OXYCODONE
     Indication: PRODUCT USED FOR UNKNOWN INDICATION
  3. OXYMORPHONE/OXYMORPHONE HYDROCHLORIDE [Concomitant]
  4. ZOPICLONE [Concomitant]
     Active Substance: ZOPICLONE
  5. QUETIAPINE [Suspect]
     Active Substance: QUETIAPINE
     Indication: PRODUCT USED FOR UNKNOWN INDICATION
     Route: 048
  6. 7-AMINOCLONAZEPAM [Concomitant]
     Active Substance: CLONAZEPAM
  7. AMFETAMINE [Concomitant]
     Active Substance: AMPHETAMINE

REACTIONS (1)
  - Toxicity to various agents [Fatal]
